FAERS Safety Report 7676772-X (Version None)
Quarter: 2011Q3

REPORT INFORMATION
  Report Type: 
  Country: None (occurrence: None)
  Receive Date: 20110811
  Receipt Date: 20110802
  Transmission Date: 20111222
  Serious: Yes (Other)
  Sender: FDA-Public Use
  Company Number: CA-JNJFOC-20110504676

PATIENT
  Sex: Male
  Weight: 79.2 kg

DRUGS (5)
  1. REMICADE [Suspect]
     Indication: CROHN'S DISEASE
     Route: 042
     Dates: start: 20110509
  2. REMICADE [Suspect]
     Route: 042
     Dates: start: 20040101
  3. VITAMIN D [Concomitant]
     Route: 048
  4. CALCIUM CARBONATE [Concomitant]
     Route: 048
  5. SCOPOLAMINE [Concomitant]
     Route: 048

REACTIONS (3)
  - INFUSION RELATED REACTION [None]
  - INTESTINAL RESECTION [None]
  - ABDOMINAL PAIN [None]
